FAERS Safety Report 16394856 (Version 1)
Quarter: 2019Q3

REPORT INFORMATION
  Report Type: Spontaneous
  Country: US (occurrence: US)
  Receive Date: 20190604
  Receipt Date: 20190604
  Transmission Date: 20191004
  Serious: Yes (Hospitalization)
  Sender: FDA-Public Use
  Company Number: None

PATIENT
  Age: 43 Year
  Sex: Female
  Weight: 121.3 kg

DRUGS (9)
  1. ATORVASTATIN 40MG [Concomitant]
     Active Substance: ATORVASTATIN
  2. GABAPENTIN 100MG [Concomitant]
     Active Substance: GABAPENTIN
  3. LOSARTAN 50MG [Concomitant]
     Active Substance: LOSARTAN
  4. SERTRALINE [Concomitant]
     Active Substance: SERTRALINE HYDROCHLORIDE
  5. FLONASE [Concomitant]
     Active Substance: FLUTICASONE PROPIONATE
  6. VITAMIN D2 [Concomitant]
     Active Substance: ERGOCALCIFEROL
  7. GLIPIZIDE ER 5MG [Concomitant]
  8. METFORMIN [Concomitant]
     Active Substance: METFORMIN HYDROCHLORIDE
  9. MELOXICAM. [Suspect]
     Active Substance: MELOXICAM

REACTIONS (1)
  - Cardiac failure [None]

NARRATIVE: CASE EVENT DATE: 20190602
